FAERS Safety Report 25785947 (Version 1)
Quarter: 2025Q3

REPORT INFORMATION
  Report Type: Spontaneous
  Country: US (occurrence: None)
  Receive Date: 20250909
  Receipt Date: 20250909
  Transmission Date: 20251020
  Serious: Yes (Hospitalization)
  Sender: FDA-CTU
  Company Number: None

PATIENT
  Age: 62 Year
  Sex: Male

DRUGS (1)
  1. VENCLEXTA [Suspect]
     Active Substance: VENETOCLAX
     Dosage: 400MG QD ORAL ?
     Route: 048

REACTIONS (4)
  - Biliary obstruction [None]
  - Acute myeloid leukaemia [None]
  - Spinal disorder [None]
  - Injury [None]
